FAERS Safety Report 6525939-2 (Version None)
Quarter: 2010Q1

REPORT INFORMATION
  Report Type: 
  Country: None (occurrence: None)
  Receive Date: 20100104
  Receipt Date: 20091222
  Transmission Date: 20100710
  Serious: Yes (Other)
  Sender: FDA-Public Use
  Company Number: US-PFIZER INC-2009270564

PATIENT
  Sex: Female
  Weight: 76.644 kg

DRUGS (6)
  1. SOLU-MEDROL [Suspect]
     Indication: MULTIPLE SCLEROSIS
     Dosage: UNK
     Route: 042
     Dates: start: 20060101, end: 20060101
  2. SOLU-MEDROL [Suspect]
     Dosage: UNK
     Route: 042
     Dates: start: 20081101, end: 20081101
  3. PREDNISONE [Suspect]
     Indication: ASTHMA
     Dosage: UNK
     Route: 048
     Dates: start: 20081201, end: 20081201
  4. REBIF [Suspect]
     Indication: MULTIPLE SCLEROSIS
     Dosage: 44 MCG, 3 IN ONE WEEK
     Route: 058
     Dates: start: 20090112, end: 20091030
  5. REBIF [Suspect]
     Dosage: UNK
     Route: 058
     Dates: start: 20060101, end: 20070101
  6. NEURONTIN [Concomitant]
     Indication: NEURALGIA
     Dosage: UNK

REACTIONS (1)
  - OSTEONECROSIS [None]
